FAERS Safety Report 9720478 (Version 1)
Quarter: 2013Q4

REPORT INFORMATION
  Report Type: Spontaneous
  Country: US (occurrence: US)
  Receive Date: 20131129
  Receipt Date: 20131129
  Transmission Date: 20140711
  Serious: Yes (Death, Hospitalization)
  Sender: FDA-Public Use
  Company Number: US-RANBAXY-2013US-75689

PATIENT
  Age: 50 Year
  Sex: Female

DRUGS (5)
  1. PARACETAMOL [Suspect]
     Indication: PAIN
     Dosage: 1 G, Q4H
     Route: 048
  2. VICODIN [Suspect]
     Indication: PAIN
     Route: 065
  3. NITROFURANTOIN [Suspect]
     Indication: URINARY TRACT INFECTION
     Route: 065
  4. METOCLOPRAMIDE [Suspect]
     Indication: PRODUCT USED FOR UNKNOWN INDICATION
     Route: 065
  5. HYDROMORPHONE [Concomitant]
     Indication: PAIN
     Route: 065

REACTIONS (4)
  - Acute hepatic failure [Fatal]
  - Pneumonia [Recovered/Resolved]
  - Malnutrition [Recovered/Resolved]
  - Generalised oedema [Recovered/Resolved]
